FAERS Safety Report 14850589 (Version 1)
Quarter: 2018Q2

REPORT INFORMATION
  Report Type: Spontaneous
  Country: US (occurrence: US)
  Receive Date: 20180506
  Receipt Date: 20180506
  Transmission Date: 20180711
  Serious: No
  Sender: FDA-Public Use
  Company Number: US-009507513-1805USA000903

PATIENT
  Sex: Male

DRUGS (1)
  1. REMERON [Suspect]
     Active Substance: MIRTAZAPINE
     Route: 048

REACTIONS (1)
  - Weight increased [Unknown]
